FAERS Safety Report 7972457 (Version 3)
Quarter: 2013Q4

REPORT INFORMATION
  Report Type: Spontaneous
  Country: US (occurrence: US)
  Receive Date: 20110603
  Receipt Date: 20131212
  Transmission Date: 20140711
  Serious: Yes (Hospitalization)
  Sender: FDA-Public Use
  Company Number: US-BAYER-2010-002211

PATIENT
  Age: 20 Year
  Sex: Female
  Weight: 145.13 kg

DRUGS (1)
  1. YAZ [Suspect]
     Indication: PRODUCT USED FOR UNKNOWN INDICATION
     Dosage: UNK UNK, QD
     Route: 048
     Dates: start: 2006, end: 2009

REACTIONS (3)
  - Cholelithiasis [None]
  - Pancreatitis [None]
  - Cholecystitis chronic [None]
